FAERS Safety Report 23738372 (Version 2)
Quarter: 2024Q2

REPORT INFORMATION
  Report Type: Spontaneous
  Country: RO (occurrence: RO)
  Receive Date: 20240412
  Receipt Date: 20240507
  Transmission Date: 20240715
  Serious: No
  Sender: FDA-Public Use
  Company Number: RO-ABBVIE-4311517

PATIENT
  Age: 70 Year
  Sex: Male

DRUGS (2)
  1. VENETOCLAX [Suspect]
     Active Substance: VENETOCLAX
     Indication: Product used for unknown indication
     Route: 048
     Dates: start: 20220609, end: 202305
  2. OBINUTUZUMAB [Concomitant]
     Active Substance: OBINUTUZUMAB
     Indication: Product used for unknown indication
     Dosage: AS PER SMPC?DURATION: 6 CYCLES
     Dates: start: 20220519

REACTIONS (3)
  - Hypertension [Unknown]
  - Anaemia [Unknown]
  - Pyrexia [Unknown]
